FAERS Safety Report 5067603-5 (Version None)
Quarter: 2006Q3

REPORT INFORMATION
  Report Type: 
  Country: None (occurrence: None)
  Receive Date: 20060802
  Receipt Date: 20060719
  Transmission Date: 20061208
  Serious: Yes (Other)
  Sender: FDA-Public Use
  Company Number: PHEH2006US09314

PATIENT
  Sex: Female

DRUGS (1)
  1. HYPOTEARS (NVO) [Suspect]

REACTIONS (3)
  - EYE OPERATION [None]
  - EYELID TUMOUR [None]
  - UNEVALUABLE EVENT [None]
